FAERS Safety Report 9449656 (Version 1)
Quarter: 2013Q3

REPORT INFORMATION
  Report Type: Spontaneous
  Country: US (occurrence: US)
  Receive Date: 20130809
  Receipt Date: 20130809
  Transmission Date: 20140515
  Serious: Yes (Other)
  Sender: FDA-Public Use
  Company Number: US-PFIZER INC-2009192301

PATIENT
  Age: 35 Year
  Sex: Male

DRUGS (5)
  1. GEODON [Suspect]
     Dosage: 60 MG, UNK
     Dates: start: 200807
  2. GEODON [Suspect]
     Dosage: INCREASED TO 160MG
     Dates: end: 2009
  3. CELEXA [Concomitant]
     Dosage: UNK
  4. TRAZODONE [Concomitant]
     Dosage: UNK
  5. NALTREXONE [Concomitant]
     Dosage: UNK

REACTIONS (3)
  - Tardive dyskinesia [Recovered/Resolved]
  - Extrapyramidal disorder [Recovered/Resolved]
  - Dyskinesia [Recovered/Resolved]
